FAERS Safety Report 19488069 (Version 1)
Quarter: 2021Q3

REPORT INFORMATION
  Report Type: Spontaneous
  Country: CN (occurrence: CN)
  Receive Date: 20210702
  Receipt Date: 20210702
  Transmission Date: 20211014
  Serious: Yes (Hospitalization)
  Sender: FDA-Public Use
  Company Number: CN-BAYER-2021-168120

PATIENT
  Age: 51 Year
  Sex: Female
  Weight: 46 kg

DRUGS (3)
  1. TRIPRIZUMAB [Suspect]
     Active Substance: TORIPALIMAB
     Indication: COLON CANCER
     Dosage: 240 MG, QD
     Route: 041
     Dates: start: 20210528, end: 20210528
  2. SODIUM CHLORIDE. [Concomitant]
     Active Substance: SODIUM CHLORIDE
     Indication: COLON CANCER
     Dosage: 100 ML, QD
     Route: 042
     Dates: start: 20210528, end: 20210528
  3. STIVARGA [Suspect]
     Active Substance: REGORAFENIB
     Indication: COLON CANCER
     Dosage: 80 MG, QD
     Route: 048
     Dates: start: 20210528, end: 20210617

REACTIONS (2)
  - Myelosuppression [Recovering/Resolving]
  - Off label use [None]

NARRATIVE: CASE EVENT DATE: 20210528
